FAERS Safety Report 7251248-2 (Version None)
Quarter: 2011Q1

REPORT INFORMATION
  Report Type: 
  Country: None (occurrence: None)
  Receive Date: 20110128
  Receipt Date: 20110120
  Transmission Date: 20110831
  Serious: Yes (Other)
  Sender: FDA-Public Use
  Company Number: CA-JNJFOC-20110105736

PATIENT
  Sex: Female
  Weight: 70.5 kg

DRUGS (9)
  1. VITAMIN D [Concomitant]
  2. ASACOL [Concomitant]
  3. QUESTRAN [Concomitant]
  4. CALCIUM [Concomitant]
  5. METHOTREXATE [Concomitant]
  6. IMODIUM [Concomitant]
  7. GRAVOL TAB [Concomitant]
  8. REMICADE [Suspect]
     Indication: CROHN'S DISEASE
     Dosage: ONCE EVERY 6-7 WEEKS
     Route: 042
  9. REMICADE [Suspect]
     Dosage: ONCE EVERY 6-7 WEEKS
     Route: 042

REACTIONS (1)
  - RENAL MASS [None]
